APPROVED DRUG PRODUCT: FLUOROURACIL
Active Ingredient: FLUOROURACIL
Strength: 0.5%
Dosage Form/Route: CREAM;TOPICAL
Application: A203122 | Product #001
Applicant: EXTROVIS AG
Approved: Apr 20, 2015 | RLD: No | RS: No | Type: DISCN